FAERS Safety Report 10373665 (Version 1)
Quarter: 2014Q1

REPORT INFORMATION
  Report Type: Spontaneous
  Country: US (occurrence: None)
  Receive Date: 20140306
  Receipt Date: 20140306
  Transmission Date: 20141002
  Serious: Yes (Hospitalization, Other)
  Sender: FDA-Public Use
  Company Number: 163-21880-13051532

PATIENT
  Age: 68 Year
  Sex: Female
  Weight: 116.58 kg

DRUGS (26)
  1. REVLIMID (LENALIDOMIDE) (5 MILLIGRAM, CAPSULES) [Suspect]
     Indication: CHRONIC LYMPHOCYTIC LEUKAEMIA
     Route: 048
     Dates: start: 20130514
  2. WELCHOL (COLESEVELAM HYDROCHLORIDE) (625 MILLIGRAM, TABLET) (COLESEVELAM HYDROCHLORIDE) [Concomitant]
  3. ACTIVELLA (OESTRANORM) (TABLETS) [Concomitant]
  4. ALLOPURINOL (TABLETS) [Concomitant]
  5. AMBIEN (ZOLPIDEM TARTRATE) (TABLETS) [Concomitant]
  6. CYMBALTA [Concomitant]
  7. DEXTRAN-HYPROMELLOSE (OTHER OPHTHALMOLOGICALS (EYE DROPS) [Concomitant]
  8. FISH OIL (CAPSULES) [Concomitant]
  9. MULTIVITAMINS [Concomitant]
  10. HUMALOG (INSULIN LISPRO) (INJECTION) [Concomitant]
  11. KLOR-CON (POTASSIUM CHLORIDE) [Concomitant]
  12. LANTUS SOLOSTAR (INSULIN GLARGINE) (INJECTION) [Concomitant]
  13. LOMOTIL (TABLETS) [Concomitant]
  14. MAG-OXIDE (TABLETS) [Concomitant]
  15. MAXZIDE (DYAZIDE) (TABLETS) [Concomitant]
  16. OXYCODONE (TABLETS) [Concomitant]
  17. SYNTHROID (LEVOTHYROXINE SODIUM) (TABLETS) [Concomitant]
  18. VITAMIN D3 (COLECALCIFEROL) (CAPSULES) [Concomitant]
  19. XANAX (ALPRAZOLAM) (TABLETS) [Concomitant]
  20. AUGMENTIN [Concomitant]
  21. BACTRIM DS (BACTRIM) (TABLETS) [Concomitant]
  22. IVIG (IMMUNOGLOBULIN) [Concomitant]
  23. NEUPOGEN (FILGRASTIM) [Concomitant]
  24. COUMADIN (WARFARIN SODIUM) (TABLETS) [Concomitant]
  25. NEULASTA (PEGFILGRASTIM) (INJECTION) [Concomitant]
  26. BIAXIN (CLARITHROMYCIN) [Concomitant]

REACTIONS (2)
  - Tumour flare [None]
  - Cellulitis [None]
